FAERS Safety Report 15592262 (Version 1)
Quarter: 2018Q4

REPORT INFORMATION
  Report Type: Spontaneous
  Country: US (occurrence: US)
  Receive Date: 20181107
  Receipt Date: 20181107
  Transmission Date: 20190205
  Serious: Yes (Other)
  Sender: FDA-Public Use
  Company Number: US-GILEAD-2018-0372295

PATIENT
  Age: 46 Year
  Sex: Male

DRUGS (1)
  1. TRUVADA [Suspect]
     Active Substance: EMTRICITABINE\TENOFOVIR DISOPROXIL FUMARATE
     Indication: PROPHYLAXIS AGAINST HIV INFECTION
     Dosage: 200/300
     Route: 065
     Dates: start: 201510

REACTIONS (5)
  - Gonorrhoea [Unknown]
  - Chlamydial infection [Unknown]
  - Drug ineffective [Unknown]
  - Genotype drug resistance test positive [Unknown]
  - Acute HIV infection [Unknown]

NARRATIVE: CASE EVENT DATE: 20180710
